FAERS Safety Report 6748432-0 (Version None)
Quarter: 2010Q2

REPORT INFORMATION
  Report Type: 
  Country: None (occurrence: None)
  Receive Date: 20100601
  Receipt Date: 20100601
  Transmission Date: 20101027
  Serious: Yes (Hospitalization)
  Sender: FDA-Public Use
  Company Number: None

PATIENT
  Age: 21 Month
  Sex: Female
  Weight: 11.3399 kg

DRUGS (2)
  1. MOTRIN [Suspect]
     Indication: PYREXIA
     Dosage: 5MG 6 HOURS
     Dates: start: 20091203, end: 20091208
  2. TYLENOL [Suspect]
     Indication: PYREXIA
     Dosage: 5MG 3 HOURS
     Dates: start: 20100427, end: 20100501

REACTIONS (6)
  - CONVULSION [None]
  - DRUG INEFFECTIVE [None]
  - FEAR [None]
  - POOR QUALITY DRUG ADMINISTERED [None]
  - PRODUCT QUALITY ISSUE [None]
  - PYREXIA [None]
